FAERS Safety Report 7709319-X (Version None)
Quarter: 2011Q3

REPORT INFORMATION
  Report Type: 
  Country: None (occurrence: None)
  Receive Date: 20110825
  Receipt Date: 20110823
  Transmission Date: 20111222
  Serious: Yes (Hospitalization)
  Sender: FDA-Public Use
  Company Number: ES-PFIZER INC-2011194565

PATIENT
  Age: 69 Year
  Sex: Female

DRUGS (6)
  1. AMIODARONE HCL [Concomitant]
     Route: 048
  2. MICARDIS HCT [Interacting]
     Indication: HYPERTENSION
     Dosage: HYDROCHLOROTHIAZIDE/ TELMISARTAN 80MG/25MG
     Route: 048
     Dates: start: 20110101, end: 20110529
  3. ALLOPURINOL [Concomitant]
     Indication: HYPERURICAEMIA
     Dosage: 100 UNK, UNK
     Route: 048
  4. SINTROM [Concomitant]
     Route: 048
  5. CARDURA [Interacting]
     Indication: HYPERTENSION
     Dosage: 4 MG, UNK
     Route: 048
     Dates: start: 20110101, end: 20110529
  6. BISOPROLOL FUMARATE [Suspect]
     Dosage: 2.5 MG, UNK
     Route: 048
     Dates: start: 20110101

REACTIONS (4)
  - DRUG INTERACTION [None]
  - DIZZINESS [None]
  - RENAL FAILURE ACUTE [None]
  - HYPOTENSION [None]
